FAERS Safety Report 15506027 (Version 9)
Quarter: 2019Q4

REPORT INFORMATION
  Report Type: Spontaneous
  Country: US (occurrence: US)
  Receive Date: 20181016
  Receipt Date: 20191108
  Transmission Date: 20200122
  Serious: Yes (Hospitalization, Other)
  Sender: FDA-Public Use
  Company Number: US-PFIZER INC-2017181035

PATIENT
  Age: 73 Year
  Sex: Male
  Weight: 91 kg

DRUGS (4)
  1. LYRICA [Suspect]
     Active Substance: PREGABALIN
     Indication: NEUROPATHY PERIPHERAL
     Dosage: 600 MG, DAILY (100MG 6 CAPSULES A DAY]
     Dates: start: 20190807
  2. LYRICA [Suspect]
     Active Substance: PREGABALIN
     Indication: DIABETIC NEUROPATHY
     Dosage: 75 MG, 2X/DAY
     Dates: start: 201612
  3. LYRICA [Suspect]
     Active Substance: PREGABALIN
     Indication: NEURALGIA
  4. LYRICA [Suspect]
     Active Substance: PREGABALIN
     Indication: PAIN IN EXTREMITY
     Dosage: 400 MG, DAILY (TAKE 1 CAP IN A.M., 1 CAP IN AFTERNOON AND 2 CAPS AT NIGHT),
     Route: 048
     Dates: end: 201701

REACTIONS (4)
  - Drug ineffective [Unknown]
  - Insomnia [Unknown]
  - Multiple fractures [Unknown]
  - Fall [Unknown]
